FAERS Safety Report 6328143-6 (Version None)
Quarter: 2009Q3

REPORT INFORMATION
  Report Type: 
  Country: None (occurrence: None)
  Receive Date: 20090825
  Receipt Date: 20081204
  Transmission Date: 20100115
  Serious: No
  Sender: FDA-Public Use
  Company Number: US-ABBOTT-08P-163-0488660-00

PATIENT
  Sex: Female
  Weight: 63.56 kg

DRUGS (4)
  1. SYNTHROID [Suspect]
     Indication: HYPOTHYROIDISM
     Dates: start: 20080905
  2. SYNTHROID [Suspect]
     Dates: end: 20080905
  3. ASPIRIN [Concomitant]
     Indication: DRUG USE FOR UNKNOWN INDICATION
  4. OLMESARTAN MEDOXOMIL [Concomitant]
     Indication: BLOOD PRESSURE
     Route: 048

REACTIONS (3)
  - AGEUSIA [None]
  - SOMNOLENCE [None]
  - WEIGHT DECREASED [None]
